FAERS Safety Report 22099559 (Version 1)
Quarter: 2023Q1

REPORT INFORMATION
  Report Type: Report from Study
  Country: DE (occurrence: DE)
  Receive Date: 20230315
  Receipt Date: 20230315
  Transmission Date: 20230418
  Serious: Yes (Death, Other)
  Sender: FDA-Public Use
  Company Number: DE-GILEAD-2023-0620380

PATIENT
  Age: 73 Year
  Sex: Male

DRUGS (1)
  1. AXICABTAGENE CILOLEUCEL [Suspect]
     Active Substance: AXICABTAGENE CILOLEUCEL
     Indication: B-cell lymphoma
     Route: 042

REACTIONS (4)
  - Sepsis [Fatal]
  - Intestinal perforation [Fatal]
  - Neurotoxicity [Unknown]
  - Cytokine release syndrome [Unknown]
